FAERS Safety Report 22174607 (Version 1)
Quarter: 2023Q2

REPORT INFORMATION
  Report Type: Other
  Country: PT (occurrence: PT)
  Receive Date: 20230405
  Receipt Date: 20230405
  Transmission Date: 20230721
  Serious: Yes (Hospitalization, Other)
  Sender: FDA-Public Use
  Company Number: PT-MLMSERVICE-20230320-4173172-1

PATIENT

DRUGS (2)
  1. NANDROLONE DECANOATE [Suspect]
     Active Substance: NANDROLONE DECANOATE
     Indication: Product used for unknown indication
     Dosage: FOR MORE THAN 20 YEARS
     Route: 030
  2. TESTOSTERONE [Suspect]
     Active Substance: TESTOSTERONE
     Indication: Product used for unknown indication
     Dosage: 1000 MG, 1 DOSE 3 MONTHS, EVERY THREE MONTHS FOR MORE THAN 20 YEARS
     Route: 030

REACTIONS (5)
  - Drug abuse [Unknown]
  - Acute myocardial infarction [Recovered/Resolved]
  - Acute coronary syndrome [Recovered/Resolved]
  - Dyslipidaemia [Recovered/Resolved]
  - Cardiomyopathy [Unknown]
